FAERS Safety Report 6443865-4 (Version None)
Quarter: 2009Q4

REPORT INFORMATION
  Report Type: 
  Country: None (occurrence: None)
  Receive Date: 20091113
  Receipt Date: 20091030
  Transmission Date: 20100525
  Serious: Yes (Other)
  Sender: FDA-Public Use
  Company Number: DSM-2009-00792

PATIENT
  Age: 52 Year
  Sex: Male

DRUGS (2)
  1. OLMESARTAN MEDOXOMIL AND HYDROCHLOROTHIZIDE [Suspect]
     Indication: HYPERTENSION
     Dosage: 20/12.5MG, ORAL
     Route: 048
     Dates: start: 20081020
  2. LANSOPRAZOLE [Suspect]
     Indication: DRUG USE FOR UNKNOWN INDICATION
     Dates: start: 20080901, end: 20090704

REACTIONS (2)
  - COLITIS [None]
  - INFLUENZA LIKE ILLNESS [None]
